FAERS Safety Report 11908152 (Version 1)
Quarter: 2016Q1

REPORT INFORMATION
  Report Type: Spontaneous
  Country: None (occurrence: BR)
  Receive Date: 20160111
  Receipt Date: 20160111
  Transmission Date: 20160526
  Serious: Yes (Other)
  Sender: FDA-Public Use
  Company Number: BR-MERCK KGAA-1046332

PATIENT

DRUGS (1)
  1. NOVOTHYROX [Suspect]
     Active Substance: LEVOTHYROXINE SODIUM

REACTIONS (10)
  - Vascular pain [None]
  - Dizziness [None]
  - Tinnitus [None]
  - Wrong technique in product usage process [None]
  - Pain in extremity [None]
  - Peripheral swelling [None]
  - Monoplegia [None]
  - Limb discomfort [None]
  - Arrhythmia [None]
  - Insomnia [None]
